FAERS Safety Report 10682165 (Version 1)
Quarter: 2014Q4

REPORT INFORMATION
  Report Type: Spontaneous
  Country: None (occurrence: None)
  Receive Date: 20141229
  Receipt Date: 20141229
  Transmission Date: 20150529
  Serious: No
  Sender: FDA-Public Use
  Company Number: None

PATIENT
  Age: 31 Year
  Sex: Female
  Weight: 97.52 kg

DRUGS (2)
  1. TAMIFLU [Suspect]
     Active Substance: OSELTAMIVIR PHOSPHATE
     Indication: DRUG THERAPY
     Dosage: 1 PILO
     Route: 048
     Dates: start: 20141226
  2. TAMIFLU [Suspect]
     Active Substance: OSELTAMIVIR PHOSPHATE
     Indication: INFLUENZA
     Dosage: 1 PILO
     Route: 048
     Dates: start: 20141226

REACTIONS (2)
  - Malaise [None]
  - Vomiting [None]

NARRATIVE: CASE EVENT DATE: 20141226
